FAERS Safety Report 7345247-X (Version None)
Quarter: 2011Q1

REPORT INFORMATION
  Report Type: 
  Country: None (occurrence: None)
  Receive Date: 20110310
  Receipt Date: 20110228
  Transmission Date: 20110831
  Serious: Yes (Other)
  Sender: FDA-Public Use
  Company Number: US-ELI_LILLY_AND_COMPANY-US201101000312

PATIENT
  Age: 56 Year
  Sex: Female

DRUGS (3)
  1. CYMBALTA [Suspect]
     Indication: DEPRESSION
     Dosage: 30 MG, DAILY (1/D)
     Dates: start: 20101230, end: 20101230
  2. HORMONIN [Concomitant]
  3. GABAPENTIN [Concomitant]
     Dosage: 300 MG, UNKNOWN

REACTIONS (5)
  - HOT FLUSH [None]
  - HYPERSENSITIVITY [None]
  - BURNING SENSATION [None]
  - HEAD DISCOMFORT [None]
  - NAUSEA [None]
